FAERS Safety Report 6025191-0 (Version None)
Quarter: 2008Q4

REPORT INFORMATION
  Report Type: 
  Country: None (occurrence: None)
  Receive Date: 20081229
  Receipt Date: 20081229
  Transmission Date: 20090506
  Serious: Yes (Hospitalization)
  Sender: FDA-Public Use
  Company Number: None

PATIENT
  Sex: Male
  Weight: 78.9 kg

DRUGS (9)
  1. FLUOROURACIL [Suspect]
     Dosage: 4865 MG
     Dates: end: 20081205
  2. LEUCOVORIN CALCIUM [Suspect]
     Dosage: 790 MG
     Dates: end: 20081205
  3. ELOXATIN [Suspect]
     Dosage: 160 MG
     Dates: end: 20081205
  4. CARDEDILOL [Concomitant]
  5. GLYBURIDE [Concomitant]
  6. HUMULIN INSULIN [Concomitant]
  7. LISINOPRIL [Concomitant]
  8. NEXIUM [Concomitant]
  9. VYTORIN [Concomitant]

REACTIONS (4)
  - FALL [None]
  - HYPOGLYCAEMIA [None]
  - TREMOR [None]
  - UNRESPONSIVE TO STIMULI [None]
